FAERS Safety Report 23184950 (Version 2)
Quarter: 2023Q4

REPORT INFORMATION
  Report Type: Report from Study
  Country: US (occurrence: US)
  Receive Date: 20231115
  Receipt Date: 20231128
  Transmission Date: 20240110
  Serious: Yes (Other)
  Sender: FDA-Public Use
  Company Number: US-ABBVIE-5491022

PATIENT
  Age: 51 Year
  Sex: Male

DRUGS (1)
  1. SKYRIZI [Suspect]
     Active Substance: RISANKIZUMAB-RZAA
     Indication: Psoriasis
     Route: 058
     Dates: start: 20210119

REACTIONS (3)
  - Road traffic accident [Unknown]
  - Tibia fracture [Recovering/Resolving]
  - Fibula fracture [Recovering/Resolving]

NARRATIVE: CASE EVENT DATE: 20230801
